FAERS Safety Report 5574018-X (Version None)
Quarter: 2007Q4

REPORT INFORMATION
  Report Type: 
  Country: None (occurrence: None)
  Receive Date: 20071221
  Receipt Date: 20071207
  Transmission Date: 20080405
  Serious: Yes (Life-Threatening, Hospitalization, Other)
  Sender: FDA-Public Use
  Company Number: URSO-2007-224

PATIENT
  Age: 8 Year
  Sex: Male

DRUGS (1)
  1. URSODIOL [Suspect]
     Indication: CHOLESTASIS
     Dosage: 20 MG/KG PO
     Route: 048

REACTIONS (5)
  - COAGULOPATHY [None]
  - GROWTH RETARDATION [None]
  - INTESTINAL HAEMORRHAGE [None]
  - PRURITUS [None]
  - PULMONARY HAEMORRHAGE [None]
